FAERS Safety Report 11552392 (Version 2)
Quarter: 2015Q4

REPORT INFORMATION
  Report Type: Spontaneous
  Country: US (occurrence: US)
  Receive Date: 20150925
  Receipt Date: 20151230
  Transmission Date: 20160304
  Serious: No
  Sender: FDA-Public Use
  Company Number: US-PFIZER INC-2015317481

PATIENT
  Age: 58 Year
  Sex: Female

DRUGS (10)
  1. XELJANZ [Suspect]
     Active Substance: TOFACITINIB CITRATE
     Indication: RHEUMATOID ARTHRITIS
     Dosage: 5 MG, 2X/DAY
     Route: 048
     Dates: start: 201506, end: 2015
  2. FOLIC ACID. [Concomitant]
     Active Substance: FOLIC ACID
  3. PLAQUENIL [Concomitant]
     Active Substance: HYDROXYCHLOROQUINE SULFATE
  4. PREDNISONE. [Concomitant]
     Active Substance: PREDNISONE
  5. VITAMIN D [Concomitant]
     Active Substance: CHOLECALCIFEROL
  6. DILTIAZEM [Concomitant]
     Active Substance: DILTIAZEM
  7. XELJANZ [Suspect]
     Active Substance: TOFACITINIB CITRATE
     Dosage: 5 MG, 2X/DAY
     Route: 048
     Dates: start: 2015
  8. METHOTREXATE [Concomitant]
     Active Substance: METHOTREXATE
  9. METOPROLOL [Concomitant]
     Active Substance: METOPROLOL
  10. OMEPRAZOLE. [Concomitant]
     Active Substance: OMEPRAZOLE

REACTIONS (1)
  - Diarrhoea [Unknown]

NARRATIVE: CASE EVENT DATE: 201508
